FAERS Safety Report 4978307-9 (Version None)
Quarter: 2006Q2

REPORT INFORMATION
  Report Type: 
  Country: None (occurrence: None)
  Receive Date: 20060414
  Receipt Date: 20060404
  Transmission Date: 20061013
  Serious: Yes (Life-Threatening, Hospitalization)
  Sender: FDA-Public Use
  Company Number: HQWYE726910APR06

PATIENT
  Age: 42 Year
  Sex: Male
  Weight: 97.16 kg

DRUGS (3)
  1. ZOSYN [Suspect]
     Indication: OSTEOMYELITIS
     Dosage: 4.5 G 1X PER 8 HR, INTRAVENOUS
     Route: 042
     Dates: start: 20060201, end: 20060220
  2. PERCOCET [Concomitant]
  3. CYCLOBENZAPRINE HCL [Concomitant]

REACTIONS (9)
  - DIALYSIS [None]
  - GASTROINTESTINAL HAEMORRHAGE [None]
  - HEPATITIS [None]
  - MYALGIA [None]
  - NEUTROPENIA [None]
  - PYREXIA [None]
  - RENAL FAILURE [None]
  - RESPIRATORY FAILURE [None]
  - THROMBOCYTOPENIA [None]
